FAERS Safety Report 12997502 (Version 1)
Quarter: 2016Q4

REPORT INFORMATION
  Report Type: Spontaneous
  Country: US (occurrence: US)
  Receive Date: 20161202
  Receipt Date: 20161202
  Transmission Date: 20170207
  Serious: Yes (Hospitalization)
  Sender: FDA-Public Use
  Company Number: None

PATIENT
  Age: 64 Year
  Sex: Male
  Weight: 85.5 kg

DRUGS (1)
  1. LISINOPRIL. [Suspect]
     Active Substance: LISINOPRIL
     Indication: HYPERTENSION
     Route: 048
     Dates: start: 20140829, end: 20150715

REACTIONS (8)
  - Diarrhoea [None]
  - Acute kidney injury [None]
  - Dyspepsia [None]
  - Loss of consciousness [None]
  - Dizziness [None]
  - Azotaemia [None]
  - Nausea [None]
  - Orthostatic intolerance [None]

NARRATIVE: CASE EVENT DATE: 20150713
